FAERS Safety Report 5333827-2 (Version None)
Quarter: 2007Q2

REPORT INFORMATION
  Report Type: 
  Country: None (occurrence: None)
  Receive Date: 20070524
  Receipt Date: 20070517
  Transmission Date: 20071010
  Serious: Yes (Hospitalization)
  Sender: FDA-Public Use
  Company Number: US-ELI_LILLY_AND_COMPANY-US200705004548

PATIENT
  Age: 78 Year
  Sex: Female

DRUGS (3)
  1. HUMULIN 70/30 [Suspect]
     Indication: DIABETES MELLITUS
  2. ACTOS [Concomitant]
  3. NOVOLOG MIX 70/30 [Concomitant]

REACTIONS (2)
  - BLOOD GLUCOSE DECREASED [None]
  - TOE AMPUTATION [None]
